FAERS Safety Report 5337591-2 (Version None)
Quarter: 2007Q2

REPORT INFORMATION
  Report Type: 
  Country: None (occurrence: None)
  Receive Date: 20070524
  Receipt Date: 20070509
  Transmission Date: 20071010
  Serious: Yes (Hospitalization)
  Sender: FDA-Public Use
  Company Number: 2007-US-000224

PATIENT
  Age: 13 Year
  Sex: Male
  Weight: 34 kg

DRUGS (1)
  1. INCRELEX [Suspect]
     Indication: BODY HEIGHT BELOW NORMAL
     Dosage: 1.3 MG, BID, SUBCUTANEOUS
     Route: 058
     Dates: start: 20070428, end: 20070501

REACTIONS (7)
  - DRUG DOSE OMISSION [None]
  - DRUG HYPERSENSITIVITY [None]
  - FOOD ALLERGY [None]
  - HYPOAESTHESIA [None]
  - NASAL CONGESTION [None]
  - PHARYNGEAL HYPOAESTHESIA [None]
  - RESPIRATORY DISTRESS [None]
